FAERS Safety Report 9664858 (Version 1)
Quarter: 2013Q4

REPORT INFORMATION
  Report Type: Spontaneous
  Country: CH (occurrence: CH)
  Receive Date: 20131101
  Receipt Date: 20131101
  Transmission Date: 20140711
  Serious: Yes (Other)
  Sender: FDA-Public Use
  Company Number: SZ-UCBSA-101865

PATIENT
  Sex: Male

DRUGS (4)
  1. LEVETIRACETAM [Suspect]
     Indication: EPILEPSY
  2. PHENYTOIN [Suspect]
     Indication: EPILEPSY
  3. PHENOBARBITONE [Suspect]
     Indication: EPILEPSY
  4. VIGABATRIN [Suspect]
     Indication: EPILEPSY

REACTIONS (2)
  - Convulsion [Unknown]
  - Drug ineffective [Unknown]
